FAERS Safety Report 16653309 (Version 2)
Quarter: 2019Q3

REPORT INFORMATION
  Report Type: Spontaneous
  Country: US (occurrence: US)
  Receive Date: 20190731
  Receipt Date: 20190802
  Transmission Date: 20191004
  Serious: No
  Sender: FDA-Public Use
  Company Number: US-TEVA-2019-US-1084332

PATIENT
  Sex: Male

DRUGS (1)
  1. ZOLPIDEM TARTRATE. [Suspect]
     Active Substance: ZOLPIDEM TARTRATE
     Indication: INSOMNIA
     Route: 065

REACTIONS (6)
  - Product substitution issue [Unknown]
  - Poor quality sleep [Unknown]
  - Drug ineffective [Unknown]
  - Heart rate increased [Unknown]
  - Bruxism [Unknown]
  - Teething [Unknown]

NARRATIVE: CASE EVENT DATE: 20190701
